FAERS Safety Report 6727495-2 (Version None)
Quarter: 2010Q2

REPORT INFORMATION
  Report Type: 
  Country: None (occurrence: None)
  Receive Date: 20100517
  Receipt Date: 20100505
  Transmission Date: 20101027
  Serious: Yes (Death)
  Sender: FDA-Public Use
  Company Number: US-AMGEN-QUU410526

PATIENT
  Sex: Male

DRUGS (6)
  1. NPLATE [Suspect]
     Indication: THROMBOCYTOPENIA
     Dates: start: 20100316, end: 20100401
  2. FENTANYL [Concomitant]
  3. DECADRON [Concomitant]
  4. DILAUDID [Concomitant]
  5. ROXANOL [Concomitant]
  6. CORTICOSTEROIDS [Concomitant]
     Dates: start: 20100311, end: 20100401

REACTIONS (1)
  - PROSTATE CANCER [None]
